FAERS Safety Report 8224539-6 (Version None)
Quarter: 2012Q1

REPORT INFORMATION
  Report Type: 
  Country: None (occurrence: None)
  Receive Date: 20120321
  Receipt Date: 20120319
  Transmission Date: 20120608
  Serious: Yes (Other)
  Sender: FDA-Public Use
  Company Number: CN-PFIZER INC-2012070432

PATIENT
  Age: 80 Year

DRUGS (1)
  1. ZOLOFT [Suspect]
     Dosage: 100 MG, DAILY
     Route: 048
     Dates: start: 20120201

REACTIONS (1)
  - RETINAL HAEMORRHAGE [None]
